FAERS Safety Report 11698457 (Version 1)
Quarter: 2015Q4

REPORT INFORMATION
  Report Type: Spontaneous
  Country: FR (occurrence: FR)
  Receive Date: 20151104
  Receipt Date: 20151104
  Transmission Date: 20160304
  Serious: Yes (Hospitalization)
  Sender: FDA-Public Use
  Company Number: FR-SA-2015SA171742

PATIENT
  Age: 77 Year
  Sex: Female

DRUGS (8)
  1. VIRLIX [Concomitant]
     Active Substance: CETIRIZINE HYDROCHLORIDE
  2. DAFALGAN [Concomitant]
     Active Substance: ACETAMINOPHEN
  3. KARDEGIC [Concomitant]
     Active Substance: ASPIRIN LYSINE
  4. ISOPTINE [Concomitant]
     Active Substance: VERAPAMIL HYDROCHLORIDE
  5. APROVEL [Suspect]
     Active Substance: IRBESARTAN
     Indication: HYPERTENSION
     Route: 065
     Dates: end: 20150712
  6. DERMOVAL [Concomitant]
     Active Substance: CLOBETASOL
  7. EUPRESSYL [Suspect]
     Active Substance: URAPIDIL
     Indication: HYPERTENSION
     Route: 065
     Dates: end: 20150712
  8. OMEPRAZOLE. [Suspect]
     Active Substance: OMEPRAZOLE
     Route: 048
     Dates: end: 20150712

REACTIONS (3)
  - Fall [Recovered/Resolved]
  - Orthostatic hypotension [Recovered/Resolved]
  - Hyponatraemia [Recovered/Resolved]

NARRATIVE: CASE EVENT DATE: 20150711
